FAERS Safety Report 7918625-5 (Version None)
Quarter: 2011Q4

REPORT INFORMATION
  Report Type: 
  Country: None (occurrence: None)
  Receive Date: 20111116
  Receipt Date: 20111108
  Transmission Date: 20120403
  Serious: Yes (Other)
  Sender: FDA-Public Use
  Company Number: US-BAYER-2011-108831

PATIENT
  Age: 59 Year
  Sex: Female
  Weight: 78 kg

DRUGS (10)
  1. HYDROCHLOROTHIAZIDE [Concomitant]
  2. FLONASE [Concomitant]
  3. PRINIVIL [Concomitant]
  4. VITAMIN TAB [Concomitant]
  5. ACETAMINOPHEN [Concomitant]
  6. NAPROXEN (ALEVE) [Suspect]
     Indication: BACK PAIN
     Dosage: 1 DF, TID
     Route: 048
     Dates: start: 20010101
  7. PREMARIN [Concomitant]
  8. TOPROL-XL [Concomitant]
  9. DIAZEPAM [Concomitant]
  10. CLARITIN [Concomitant]

REACTIONS (5)
  - ABDOMINAL DISCOMFORT [None]
  - VOMITING [None]
  - BLOOD COUNT ABNORMAL [None]
  - SMALL INTESTINAL OBSTRUCTION [None]
  - INTESTINAL DIAPHRAGM DISEASE [None]
